FAERS Safety Report 25383731 (Version 3)
Quarter: 2025Q3

REPORT INFORMATION
  Report Type: Spontaneous
  Country: EU (occurrence: EU)
  Receive Date: 20250602
  Receipt Date: 20250801
  Transmission Date: 20251021
  Serious: Yes (Other)
  Sender: TAKEDA
  Company Number: EU-TAKEDA-2025TUS042257

PATIENT
  Age: 77 Year
  Sex: Male

DRUGS (1)
  1. FRUZAQLA [Suspect]
     Active Substance: FRUQUINTINIB
     Indication: Product used for unknown indication

REACTIONS (12)
  - Pancreatic disorder [Unknown]
  - Liver disorder [Unknown]
  - Proctitis [Unknown]
  - Blood glucose increased [Unknown]
  - Metastases to lung [Unknown]
  - Adrenal neoplasm [Unknown]
  - Head discomfort [Unknown]
  - Ear discomfort [Unknown]
  - Computerised tomogram pancreas abnormal [Unknown]
  - Abdominal pain [Unknown]
  - Diarrhoea [Unknown]
  - Weight decreased [Unknown]
